FAERS Safety Report 8540013-1 (Version None)
Quarter: 2012Q3

REPORT INFORMATION
  Report Type: 
  Country: None (occurrence: None)
  Receive Date: 20120726
  Receipt Date: 20120725
  Transmission Date: 20120928
  Serious: Yes (Hospitalization, Other)
  Sender: FDA-Public Use
  Company Number: CO-ROCHE-1083820

PATIENT
  Sex: Female

DRUGS (1)
  1. CELLCEPT [Suspect]
     Indication: RENAL TRANSPLANT
     Route: 048
     Dates: start: 20090518

REACTIONS (4)
  - SEPTIC SHOCK [None]
  - KIDNEY TRANSPLANT REJECTION [None]
  - SEPSIS [None]
  - GASTROINTESTINAL INFECTION [None]
